FAERS Safety Report 19464207 (Version 1)
Quarter: 2021Q2

REPORT INFORMATION
  Report Type: Report from Study
  Country: CA (occurrence: CA)
  Receive Date: 20210627
  Receipt Date: 20210627
  Transmission Date: 20210717
  Serious: Yes (Other)
  Sender: FDA-Public Use
  Company Number: NVSC2021CA110131

PATIENT
  Sex: Male

DRUGS (3)
  1. MEKINIST [Suspect]
     Active Substance: TRAMETINIB DIMETHYL SULFOXIDE
     Indication: METASTATIC MALIGNANT MELANOMA
     Dosage: UNK
     Route: 048
     Dates: start: 20201204
  2. TAFINLAR [Suspect]
     Active Substance: DABRAFENIB MESYLATE
     Dosage: 300 MG, QD
     Route: 048
     Dates: start: 20201204
  3. TAFINLAR [Suspect]
     Active Substance: DABRAFENIB MESYLATE
     Indication: METASTATIC MALIGNANT MELANOMA
     Dosage: 1 DF, BID
     Route: 065

REACTIONS (3)
  - Feeling abnormal [Recovered/Resolved]
  - Incorrect dose administered [Unknown]
  - Product dose omission issue [Recovered/Resolved]
